FAERS Safety Report 12949526 (Version 1)
Quarter: 2016Q4

REPORT INFORMATION
  Report Type: Spontaneous
  Country: US (occurrence: US)
  Receive Date: 20161116
  Receipt Date: 20161116
  Transmission Date: 20170207
  Serious: No
  Sender: FDA-Public Use
  Company Number: US-NOVOPROD-478336

PATIENT
  Age: 53 Year
  Sex: Female

DRUGS (1)
  1. NOVOLOG MIX 70/30 [Suspect]
     Active Substance: INSULIN ASPART
     Indication: TYPE 2 DIABETES MELLITUS
     Route: 058
     Dates: start: 20160104

REACTIONS (9)
  - Dizziness [Not Recovered/Not Resolved]
  - Confusional state [Not Recovered/Not Resolved]
  - Flatulence [Not Recovered/Not Resolved]
  - Hyperhidrosis [Not Recovered/Not Resolved]
  - Tremor [Not Recovered/Not Resolved]
  - Asthenia [Not Recovered/Not Resolved]
  - Hypoaesthesia [Not Recovered/Not Resolved]
  - Hallucination [Not Recovered/Not Resolved]
  - Blood glucose increased [Not Recovered/Not Resolved]
